FAERS Safety Report 24737183 (Version 2)
Quarter: 2024Q4

REPORT INFORMATION
  Report Type: Report from Study
  Country: GB (occurrence: GB)
  Receive Date: 20241216
  Receipt Date: 20241223
  Transmission Date: 20250115
  Serious: Yes (Disabling)
  Sender: LEO PHARM
  Company Number: GB-LEO Pharma-375865

PATIENT
  Age: 77 Year
  Sex: Male

DRUGS (2)
  1. ADBRY [Suspect]
     Active Substance: TRALOKINUMAB-LDRM
     Indication: Dermatitis atopic
     Dosage: WEEK 0 LOADING DOSE
     Route: 058
     Dates: start: 202407
  2. ADBRY [Suspect]
     Active Substance: TRALOKINUMAB-LDRM
     Indication: Dermatitis atopic
     Route: 058

REACTIONS (1)
  - Musculoskeletal disorder [Unknown]
